FAERS Safety Report 9238165 (Version 1)
Quarter: 2013Q2

REPORT INFORMATION
  Report Type: Report from Study
  Country: MX (occurrence: MX)
  Receive Date: 20130418
  Receipt Date: 20130418
  Transmission Date: 20140414
  Serious: Yes (Hospitalization)
  Sender: FDA-Public Use
  Company Number: PHHY2013MX037154

PATIENT
  Age: 73 Year
  Sex: Female

DRUGS (1)
  1. CO-DIOVAN [Suspect]
     Indication: HYPERTENSION
     Dosage: 1 DF (80MG VALS/ 12.5 MG HCT), TID
     Route: 048
     Dates: start: 20100401

REACTIONS (2)
  - Bronchial disorder [Recovering/Resolving]
  - Chest pain [Recovering/Resolving]
